FAERS Safety Report 14119956 (Version 3)
Quarter: 2018Q2

REPORT INFORMATION
  Report Type: Not Available
  Country: US (occurrence: US)
  Receive Date: 20171024
  Receipt Date: 20180419
  Transmission Date: 20180711
  Serious: No
  Sender: FDA-Public Use
  Company Number: US-NEUROCRINE BIOSCIENCES INC.-2017NBI01011

PATIENT
  Age: 69 Year
  Sex: Female

DRUGS (2)
  1. INGREZZA [Suspect]
     Active Substance: VALBENAZINE
     Indication: TARDIVE DYSKINESIA
     Route: 048
     Dates: start: 20170830, end: 20170906
  2. INGREZZA [Suspect]
     Active Substance: VALBENAZINE
     Route: 048
     Dates: start: 20170907, end: 2017

REACTIONS (8)
  - Musculoskeletal stiffness [Recovering/Resolving]
  - Tardive dyskinesia [Recovering/Resolving]
  - Muscular weakness [Recovering/Resolving]
  - Joint stiffness [Recovering/Resolving]
  - Drooling [Recovering/Resolving]
  - Vomiting [Unknown]
  - Loss of personal independence in daily activities [Unknown]
  - Depression [Unknown]

NARRATIVE: CASE EVENT DATE: 2017
